FAERS Safety Report 5522120-0 (Version None)
Quarter: 2007Q4

REPORT INFORMATION
  Report Type: 
  Country: None (occurrence: None)
  Receive Date: 20071120
  Receipt Date: 20071024
  Transmission Date: 20080405
  Serious: Yes (Hospitalization)
  Sender: FDA-Public Use
  Company Number: FR-MERCK-0710FRA00076

PATIENT
  Age: 60 Year
  Sex: Male

DRUGS (5)
  1. HYZAAR [Suspect]
     Indication: HYPERTENSION
     Route: 048
     Dates: end: 20071023
  2. ALLOPURINOL [Concomitant]
     Route: 048
     Dates: end: 20071023
  3. ISRADIPINE [Concomitant]
     Indication: HYPERTENSION
     Route: 048
     Dates: end: 20071023
  4. TRAMADOL HYDROCHLORIDE [Concomitant]
     Indication: OSTEOARTHRITIS
     Route: 048
     Dates: end: 20071023
  5. OMEPRAZOLE [Concomitant]
     Route: 048
     Dates: end: 20071023

REACTIONS (3)
  - HYPERCALCAEMIA [None]
  - HYPERPARATHYROIDISM [None]
  - PANCREATITIS [None]
